FAERS Safety Report 7981353-4 (Version None)
Quarter: 2011Q4

REPORT INFORMATION
  Report Type: 
  Country: None (occurrence: None)
  Receive Date: 20111212
  Receipt Date: 20111201
  Transmission Date: 20120403
  Serious: Yes (Hospitalization)
  Sender: FDA-Public Use
  Company Number: DKLU1071243

PATIENT
  Age: 57 Year
  Sex: Male

DRUGS (7)
  1. LIORESAL [Suspect]
     Indication: PRODUCT USED FOR UNKNOWN INDICATION
     Dosage: 10 MILLIGRAM(S), 3 IN 1 D, ORAL
     Route: 048
     Dates: end: 20110106
  2. ZYPREXA [Suspect]
     Indication: SCHIZOPHRENIA
     Dosage: 10 MG MILLIGRAM(S), 1 IN 1 D, ORAL
     Route: 048
     Dates: end: 20110106
  3. CLONAZEPAM [Concomitant]
  4. ONFI (CLOBAZAM) (CLOBAZAM) (10 MG. TABLET) [Suspect]
     Indication: PRODUCT USED FOR UNKNOWN INDICATION
     Dosage: 10 MG MILLIGRAM(S), 2 IN 1 D, ORAL
     Route: 048
     Dates: end: 20110106
  5. FLUVOXAMINE MALEATE [Suspect]
     Indication: PRODUCT USED FOR UNKNOWN INDICATION
     Dosage: 1 DF DOSAGE FORM, 1 IN 1 D, ORAL
     Route: 048
     Dates: end: 20110106
  6. LAMOTRIGINE [Concomitant]
  7. PENTOXIFYLLINE [Concomitant]

REACTIONS (10)
  - SEPSIS [None]
  - HYPOTHERMIA [None]
  - SOMNOLENCE [None]
  - GENERAL PHYSICAL HEALTH DETERIORATION [None]
  - BRADYCARDIA [None]
  - RESPIRATORY ARREST [None]
  - HAEMODYNAMIC INSTABILITY [None]
  - CARDIAC ARREST [None]
  - SALIVARY HYPERSECRETION [None]
  - INTERNATIONAL NORMALISED RATIO INCREASED [None]
